FAERS Safety Report 4970528-4 (Version None)
Quarter: 2006Q2

REPORT INFORMATION
  Report Type: 
  Country: None (occurrence: None)
  Receive Date: 20060406
  Receipt Date: 20060324
  Transmission Date: 20061013
  Serious: Yes (Death)
  Sender: FDA-Public Use
  Company Number: 2006RR-01853

PATIENT
  Age: 38 Year
  Sex: Female

DRUGS (4)
  1. CITALOPRAM TABLET 40 MG (CITALOPRAM)  TABLET, 40 MG [Suspect]
     Indication: DEPRESSION
     Dosage: 40 MG, ORAL
     Route: 048
     Dates: start: 20050413
  2. SANDO-K (POTASSIUM BICARBONATE) [Suspect]
     Indication: BLOOD POTASSIUM DECREASED
     Dosage: 2, BID, ORAL
     Route: 048
     Dates: start: 20050628
  3. POTASSIUM CHLORIDE [Suspect]
     Indication: BLOOD POTASSIUM DECREASED
     Dosage: 2, BID, ORAL
     Route: 048
     Dates: start: 20050628
  4. FLUOXETINE [Suspect]
     Indication: DEPRESSION
     Dates: start: 20050522

REACTIONS (9)
  - BLOOD POTASSIUM DECREASED [None]
  - CARDIAC ARREST [None]
  - GASTRIC HAEMORRHAGE [None]
  - GASTRITIS ALCOHOLIC [None]
  - HEPATIC FUNCTION ABNORMAL [None]
  - HEPATIC STEATOSIS [None]
  - OVERDOSE [None]
  - THERAPY NON-RESPONDER [None]
  - VOMITING [None]
